FAERS Safety Report 7708553-2 (Version None)
Quarter: 2011Q3

REPORT INFORMATION
  Report Type: 
  Country: None (occurrence: None)
  Receive Date: 20110825
  Receipt Date: 20110822
  Transmission Date: 20111222
  Serious: Yes (Hospitalization, Disabling)
  Sender: FDA-Public Use
  Company Number: US-BAYER-2011-076761

PATIENT
  Sex: Female

DRUGS (3)
  1. YASMIN [Suspect]
     Dosage: UNK
     Dates: start: 20030101, end: 20090101
  2. DROSPIRENONE AND ETHINYL ESTRADIOL [Suspect]
     Dosage: UNK
     Dates: start: 20030101, end: 20090101
  3. YAZ [Suspect]
     Dosage: UNK
     Dates: start: 20030101, end: 20090101

REACTIONS (6)
  - PAIN [None]
  - ANXIETY [None]
  - INJURY [None]
  - DEFORMITY [None]
  - GALLBLADDER DISORDER [None]
  - ANHEDONIA [None]
